FAERS Safety Report 9336662 (Version 1)
Quarter: 2013Q2

REPORT INFORMATION
  Report Type: Spontaneous
  Country: US (occurrence: US)
  Receive Date: 20130607
  Receipt Date: 20130607
  Transmission Date: 20140414
  Serious: Yes (Hospitalization, Other)
  Sender: FDA-Public Use
  Company Number: PHEH2013US012263

PATIENT
  Age: 25 Year
  Sex: Female

DRUGS (1)
  1. TOBI [Suspect]
     Dosage: 2 DF, DAILY (FOR A MONTH AND THEN OFF FOR A MONTH)

REACTIONS (5)
  - Pneumonia [Recovered/Resolved]
  - Diabetes mellitus [Unknown]
  - Cystic fibrosis [Recovered/Resolved]
  - Weight increased [Recovered/Resolved]
  - Oxygen saturation decreased [Recovered/Resolved]
